FAERS Safety Report 16730003 (Version 2)
Quarter: 2020Q1

REPORT INFORMATION
  Report Type: Report from Study
  Country: US (occurrence: US)
  Receive Date: 20190822
  Receipt Date: 20200129
  Transmission Date: 20200409
  Serious: Yes (Other)
  Sender: FDA-Public Use
  Company Number: PHEH2019US034564

PATIENT
  Sex: Male

DRUGS (1)
  1. ENTRESTO [Suspect]
     Active Substance: SACUBITRIL\VALSARTAN
     Indication: CARDIAC FAILURE CHRONIC
     Dosage: UNK UNK, BID
     Route: 048
     Dates: start: 201605

REACTIONS (3)
  - Insomnia [Unknown]
  - Prostate cancer [Recovering/Resolving]
  - Eyelid ptosis [Unknown]

NARRATIVE: CASE EVENT DATE: 2019
